FAERS Safety Report 18989892 (Version 2)
Quarter: 2021Q1

REPORT INFORMATION
  Report Type: Spontaneous
  Country: GB (occurrence: GB)
  Receive Date: 20210310
  Receipt Date: 20210317
  Transmission Date: 20210420
  Serious: Yes (Hospitalization)
  Sender: FDA-Public Use
  Company Number: GB-DRREDDYS-USA/UKI/21/0132804

PATIENT
  Age: 41 Year
  Sex: Female

DRUGS (3)
  1. FONDAPARINUX SODIUM. [Suspect]
     Active Substance: FONDAPARINUX SODIUM
     Indication: DEEP VEIN THROMBOSIS
     Route: 058
  2. DALTEPARIN SODIUM [Suspect]
     Active Substance: DALTEPARIN SODIUM
     Indication: DEEP VEIN THROMBOSIS
     Route: 058
  3. ENOXAPARIN SODIUM. [Suspect]
     Active Substance: ENOXAPARIN SODIUM
     Indication: DEEP VEIN THROMBOSIS

REACTIONS (3)
  - Injection site cellulitis [Recovered/Resolved]
  - Exposure during pregnancy [Recovered/Resolved]
  - Type IV hypersensitivity reaction [Recovered/Resolved]
